FAERS Safety Report 7655132-1 (Version None)
Quarter: 2011Q3

REPORT INFORMATION
  Report Type: 
  Country: None (occurrence: None)
  Receive Date: 20110804
  Receipt Date: 20110727
  Transmission Date: 20111222
  Serious: Yes (Other)
  Sender: FDA-Public Use
  Company Number: GB-JNJFOC-20110611695

PATIENT
  Sex: Male

DRUGS (1)
  1. RISPERDAL CONSTA [Suspect]
     Indication: PRODUCT USED FOR UNKNOWN INDICATION
     Route: 030
     Dates: start: 20061201, end: 20071001

REACTIONS (11)
  - URINARY INCONTINENCE [None]
  - DYSPNOEA [None]
  - SALIVARY HYPERSECRETION [None]
  - PAIN [None]
  - DYSPHAGIA [None]
  - RETROGRADE EJACULATION [None]
  - WEIGHT INCREASED [None]
  - MUSCULOSKELETAL STIFFNESS [None]
  - OEDEMA PERIPHERAL [None]
  - FLUID INTAKE REDUCED [None]
  - SOMNOLENCE [None]
